FAERS Safety Report 20988602 (Version 1)
Quarter: 2022Q2

REPORT INFORMATION
  Report Type: Spontaneous
  Country: KR (occurrence: KR)
  Receive Date: 20220621
  Receipt Date: 20220621
  Transmission Date: 20220721
  Serious: Yes (Other)
  Sender: FDA-Public Use
  Company Number: KR-SCALL-2022-KR-000032

PATIENT
  Sex: Male

DRUGS (1)
  1. DUTASTERIDE\TAMSULOSIN HYDROCHLORIDE [Suspect]
     Active Substance: DUTASTERIDE\TAMSULOSIN HYDROCHLORIDE
     Indication: Product used for unknown indication
     Dosage: UNKNOWN
     Route: 065

REACTIONS (4)
  - Foreign body in throat [Unknown]
  - Obstructive airways disorder [Unknown]
  - Near death experience [Unknown]
  - Product complaint [Unknown]
